FAERS Safety Report 5007513-2 (Version None)
Quarter: 2006Q2

REPORT INFORMATION
  Report Type: 
  Country: None (occurrence: None)
  Receive Date: 20060403
  Receipt Date: 20050916
  Transmission Date: 20061013
  Serious: Yes (Life-Threatening)
  Sender: FDA-Public Use
  Company Number: BDI-007513

PATIENT
  Age: 71 Year
  Sex: Male
  Weight: 68.5 kg

DRUGS (7)
  1. GASTROGRAFIN [Suspect]
     Indication: ABDOMINAL PAIN
     Dosage: 14 ML ONCE PO
     Route: 048
     Dates: start: 20050831, end: 20050831
  2. GASTROGRAFIN [Suspect]
     Indication: COMPUTERISED TOMOGRAM
     Dosage: 14 ML ONCE PO
     Route: 048
     Dates: start: 20050831, end: 20050831
  3. TORADOL [Suspect]
     Dosage: 30 MG ONCE IV
     Route: 042
     Dates: start: 20050831, end: 20050831
  4. COMPAZINE [Suspect]
     Dosage: 5 MG ONCE IV
     Route: 042
     Dates: start: 20050831, end: 20050831
  5. TYLENOL (CAPLET) [Concomitant]
  6. ASPIRIN [Concomitant]
  7. ASACOL [Concomitant]

REACTIONS (1)
  - ANAPHYLACTOID REACTION [None]
